FAERS Safety Report 14391569 (Version 2)
Quarter: 2018Q1

REPORT INFORMATION
  Report Type: Report from Study
  Country: AR (occurrence: AR)
  Receive Date: 20180116
  Receipt Date: 20180121
  Transmission Date: 20180509
  Serious: Yes (Death, Hospitalization, Other)
  Sender: FDA-Public Use
  Company Number: PHHY2018AR006059

PATIENT
  Sex: Male

DRUGS (1)
  1. AFINITOR [Suspect]
     Active Substance: EVEROLIMUS
     Indication: RENAL CANCER
     Dosage: 10 MG, QD
     Route: 065
     Dates: start: 20170201

REACTIONS (4)
  - Multiple organ dysfunction syndrome [Fatal]
  - Depression [Unknown]
  - Cardio-respiratory arrest [Fatal]
  - Drug ineffective [Unknown]
